FAERS Safety Report 21494652 (Version 2)
Quarter: 2022Q4

REPORT INFORMATION
  Report Type: Spontaneous
  Country: AR (occurrence: AR)
  Receive Date: 20221021
  Receipt Date: 20221102
  Transmission Date: 20230112
  Serious: Yes (Hospitalization, Other)
  Sender: FDA-Public Use
  Company Number: AR-ALLERGAN-2234275US

PATIENT
  Sex: Female

DRUGS (3)
  1. MORPHINE SULFATE [Suspect]
     Active Substance: MORPHINE SULFATE
     Indication: Pain
     Dosage: HIGH DOSES
  2. PREGABALIN [Concomitant]
     Active Substance: PREGABALIN
     Indication: Pain
     Dosage: HIGH DOSES
  3. SUNITINIB [Concomitant]
     Active Substance: SUNITINIB
     Indication: Alveolar soft part sarcoma

REACTIONS (2)
  - Cholestasis [Recovered/Resolved]
  - Sphincter of Oddi dysfunction [Recovered/Resolved]
